FAERS Safety Report 8376184-X (Version None)
Quarter: 2012Q2

REPORT INFORMATION
  Report Type: 
  Country: None (occurrence: None)
  Receive Date: 20120522
  Receipt Date: 20120510
  Transmission Date: 20120825
  Serious: Yes (Other)
  Sender: FDA-Public Use
  Company Number: US-SANOFI-AVENTIS-2012SA033946

PATIENT
  Age: 90 Year
  Sex: Male

DRUGS (2)
  1. PREDNISONE [Concomitant]
     Indication: POLYMYALGIA RHEUMATICA
  2. PLAVIX [Suspect]
     Route: 048
     Dates: start: 20101117, end: 20111101

REACTIONS (5)
  - CONTUSION [None]
  - HYPOACUSIS [None]
  - HAEMORRHAGE [None]
  - PIGMENTATION DISORDER [None]
  - POLYMYALGIA RHEUMATICA [None]
